FAERS Safety Report 9231403 (Version 1)
Quarter: 2013Q2

REPORT INFORMATION
  Report Type: Spontaneous
  Country: CH (occurrence: CH)
  Receive Date: 20130415
  Receipt Date: 20130415
  Transmission Date: 20140414
  Serious: Yes (Hospitalization)
  Sender: FDA-Public Use
  Company Number: CH-ROCHE-1213893

PATIENT
  Sex: Female

DRUGS (5)
  1. ROCEPHIN [Suspect]
     Indication: LATENT SYPHILIS
     Route: 065
     Dates: start: 20120516, end: 20120516
  2. HALOPERIDOL [Suspect]
     Indication: PSYCHOTIC DISORDER
     Route: 064
     Dates: start: 20120516
  3. EXTENCILLINE [Suspect]
     Indication: LATENT SYPHILIS
     Route: 064
     Dates: start: 20120517
  4. TRUVADA [Suspect]
     Indication: HIV INFECTION
     Route: 064
     Dates: start: 20120517
  5. ISENTRESS [Suspect]
     Indication: HIV INFECTION
     Route: 064
     Dates: start: 20120517

REACTIONS (5)
  - Maternal exposure during pregnancy [Unknown]
  - Premature baby [Recovered/Resolved]
  - Neonatal respiratory distress syndrome [Recovered/Resolved]
  - Jaundice neonatal [Recovered/Resolved]
  - Anaemia neonatal [Recovered/Resolved]
